FAERS Safety Report 6515963-8 (Version None)
Quarter: 2009Q4

REPORT INFORMATION
  Report Type: 
  Country: None (occurrence: None)
  Receive Date: 20091211
  Receipt Date: 20090423
  Transmission Date: 20100525
  Serious: Yes (Other)
  Sender: FDA-Public Use
  Company Number: SPV1-2009-00694

PATIENT
  Age: 20 Year
  Sex: Male
  Weight: 81.6 kg

DRUGS (7)
  1. ADDERALL XR 10 [Suspect]
     Indication: ATTENTION DEFICIT/HYPERACTIVITY DISORDER
     Dosage: 20 MG, 1X/DAY: QD, ORAL
     Route: 048
     Dates: start: 20090127, end: 20090202
  2. ADDERALL 10 [Suspect]
     Dosage: 10 MG, 1X/DAY: QD 2 DOSES OF 5 MG
  3. CELEXA [Suspect]
     Indication: ANXIETY
     Dates: start: 20090127, end: 20090202
  4. AMOXICILLIN [Concomitant]
  5. ANTIBIOTICS [Concomitant]
  6. ZOLOFT [Concomitant]
  7. RITALIN [Concomitant]

REACTIONS (6)
  - AGGRESSION [None]
  - AGITATION [None]
  - BLOOD PRESSURE INCREASED [None]
  - INSOMNIA [None]
  - NAUSEA [None]
  - VOMITING [None]
